FAERS Safety Report 23960097 (Version 1)
Quarter: 2024Q2

REPORT INFORMATION
  Report Type: Report from Study
  Country: US (occurrence: US)
  Receive Date: 20240611
  Receipt Date: 20240611
  Transmission Date: 20240715
  Serious: Yes (Other)
  Sender: FDA-Public Use
  Company Number: US-ABBVIE-5789039

PATIENT
  Sex: Male

DRUGS (1)
  1. HUMIRA [Suspect]
     Active Substance: ADALIMUMAB
     Indication: Product used for unknown indication
     Route: 058

REACTIONS (6)
  - Colon operation [Recovering/Resolving]
  - General symptom [Recovering/Resolving]
  - Off label use [Recovering/Resolving]
  - Unevaluable event [Recovering/Resolving]
  - Systemic lupus erythematosus [Unknown]
  - Uterine leiomyoma [Unknown]
